FAERS Safety Report 6748402-2 (Version None)
Quarter: 2010Q2

REPORT INFORMATION
  Report Type: 
  Country: None (occurrence: None)
  Receive Date: 20100527
  Receipt Date: 20100527
  Transmission Date: 20101027
  Serious: Yes (Hospitalization)
  Sender: FDA-Public Use
  Company Number: None

PATIENT
  Age: 35 Year
  Sex: Male

DRUGS (2)
  1. ABILIFY [Suspect]
     Indication: ANXIETY
     Dosage: 5MG 3 DAILY ORAL
     Route: 048
     Dates: start: 20081207, end: 20090515
  2. ABILIFY [Suspect]
     Dosage: 5MG   1 DAILY   ORAL
     Route: 048
     Dates: start: 20090515, end: 20100221

REACTIONS (3)
  - ANTIPHOSPHOLIPID ANTIBODIES [None]
  - DEEP VEIN THROMBOSIS [None]
  - PULMONARY EMBOLISM [None]
